FAERS Safety Report 4639736-6 (Version None)
Quarter: 2005Q1

REPORT INFORMATION
  Report Type: 
  Country: None (occurrence: None)
  Receive Date: 20050328
  Receipt Date: 20050127
  Transmission Date: 20050727
  Serious: No
  Sender: FDA-Public Use
  Company Number: USA050189280

PATIENT
  Age: 41 Year
  Sex: Female

DRUGS (5)
  1. STRATTERA [Suspect]
     Indication: ATTENTION DEFICIT/HYPERACTIVITY DISORDER
     Dosage: 40 MG DAY
     Dates: start: 20050126
  2. LEXAPRO [Concomitant]
  3. TRAZADONE (TRAZODONE) [Concomitant]
  4. TYLENOL (CAPLET) [Concomitant]
  5. ANTIHISTIMINE [Concomitant]

REACTIONS (7)
  - ASTHENIA [None]
  - DISTURBANCE IN ATTENTION [None]
  - FEELING ABNORMAL [None]
  - LETHARGY [None]
  - NAUSEA [None]
  - SEDATION [None]
  - SOMNOLENCE [None]
